FAERS Safety Report 17717301 (Version 2)
Quarter: 2020Q4

REPORT INFORMATION
  Report Type: Spontaneous
  Country: US (occurrence: US)
  Receive Date: 20200428
  Receipt Date: 20201201
  Transmission Date: 20210113
  Serious: Yes (Hospitalization, Other)
  Sender: FDA-Public Use
  Company Number: US-ASTRAZENECA-2020SE54063

PATIENT
  Age: 21186 Day
  Sex: Male
  Weight: 79.4 kg

DRUGS (44)
  1. LISINOPRIL. [Concomitant]
     Active Substance: LISINOPRIL
     Indication: HYPERTENSION
     Dates: start: 20100705
  2. METOPROLOL TARTRATE. [Concomitant]
     Active Substance: METOPROLOL TARTRATE
  3. NEXIUM 24HR [Suspect]
     Active Substance: ESOMEPRAZOLE MAGNESIUM
     Indication: ERUCTATION
     Route: 048
     Dates: start: 200401, end: 201712
  4. NEXIUM 24HR [Suspect]
     Active Substance: ESOMEPRAZOLE MAGNESIUM
     Indication: DYSPEPSIA
     Dosage: TWICE A DAY
     Route: 048
     Dates: start: 2002
  5. NEXIUM [Suspect]
     Active Substance: ESOMEPRAZOLE MAGNESIUM
     Indication: GASTROOESOPHAGEAL REFLUX DISEASE
     Route: 048
  6. PREVACID [Suspect]
     Active Substance: LANSOPRAZOLE
     Route: 065
     Dates: start: 200401, end: 201712
  7. PROTONIX [Suspect]
     Active Substance: PANTOPRAZOLE SODIUM
     Indication: GASTROOESOPHAGEAL REFLUX DISEASE
     Route: 065
     Dates: start: 20170706
  8. PROTONIX [Suspect]
     Active Substance: PANTOPRAZOLE SODIUM
     Indication: GASTROOESOPHAGEAL REFLUX DISEASE
     Route: 065
     Dates: start: 20170801
  9. SEROQUEL [Concomitant]
     Active Substance: QUETIAPINE FUMARATE
  10. PEPCID [Concomitant]
     Active Substance: FAMOTIDINE
  11. ZANTAC [Concomitant]
     Active Substance: RANITIDINE HYDROCHLORIDE
  12. RENVELA [Concomitant]
     Active Substance: SEVELAMER CARBONATE
  13. PRILOSEC [Suspect]
     Active Substance: OMEPRAZOLE MAGNESIUM
     Indication: GASTROOESOPHAGEAL REFLUX DISEASE
     Dosage: GENERIC
     Route: 065
     Dates: start: 20170424
  14. PRILOSEC OTC [Suspect]
     Active Substance: OMEPRAZOLE MAGNESIUM
     Route: 048
  15. QUINAPRIL. [Concomitant]
     Active Substance: QUINAPRIL
     Indication: HYPERTENSION
     Dates: start: 20090516
  16. TUMS [Concomitant]
     Active Substance: CALCIUM CARBONATE
     Dates: start: 2002, end: 2017
  17. ROLAIDS [Concomitant]
     Active Substance: CALCIUM CARBONATE\MAGNESIUM HYDROXIDE
     Dates: start: 2002, end: 2017
  18. DIPHENHYDRAMINE. [Concomitant]
     Active Substance: DIPHENHYDRAMINE
  19. BISOPROLOL FUMARATE. [Concomitant]
     Active Substance: BISOPROLOL FUMARATE
  20. NEXIUM 24HR [Suspect]
     Active Substance: ESOMEPRAZOLE MAGNESIUM
     Indication: GASTROOESOPHAGEAL REFLUX DISEASE
     Dosage: TWICE A DAY
     Route: 048
     Dates: start: 2002
  21. NEXIUM 24HR [Suspect]
     Active Substance: ESOMEPRAZOLE MAGNESIUM
     Indication: ERUCTATION
     Dosage: TWICE A DAY
     Route: 048
     Dates: start: 2002
  22. CRESTOR [Concomitant]
     Active Substance: ROSUVASTATIN CALCIUM
     Indication: BLOOD CHOLESTEROL INCREASED
     Dates: start: 20120111
  23. CIMETIDINE HYDROCHLORIDE. [Concomitant]
     Active Substance: CIMETIDINE HYDROCHLORIDE
  24. SIMVASTATIN. [Concomitant]
     Active Substance: SIMVASTATIN
  25. PROTONIX [Suspect]
     Active Substance: PANTOPRAZOLE SODIUM
     Indication: GASTROOESOPHAGEAL REFLUX DISEASE
     Route: 065
     Dates: start: 20170503
  26. CLINDAMYCIN. [Concomitant]
     Active Substance: CLINDAMYCIN
  27. SENSIPAR [Concomitant]
     Active Substance: CINACALCET HYDROCHLORIDE
  28. PRILOSEC [Suspect]
     Active Substance: OMEPRAZOLE MAGNESIUM
     Indication: GASTROOESOPHAGEAL REFLUX DISEASE
     Route: 048
     Dates: start: 200401, end: 201712
  29. ALLOPURINOL. [Concomitant]
     Active Substance: ALLOPURINOL
     Indication: BLOOD URIC ACID
     Dates: start: 20120111
  30. AMLODIPINE BESYLATE. [Concomitant]
     Active Substance: AMLODIPINE BESYLATE
  31. OXYCODONE [Concomitant]
     Active Substance: OXYCODONE
  32. CALCIUM ACETATE. [Concomitant]
     Active Substance: CALCIUM ACETATE
  33. MEGESTROL ACETATE. [Concomitant]
     Active Substance: MEGESTROL ACETATE
  34. BENADRYL [Concomitant]
     Active Substance: DIPHENHYDRAMINE HYDROCHLORIDE
  35. NEXIUM 24HR [Suspect]
     Active Substance: ESOMEPRAZOLE MAGNESIUM
     Indication: DYSPEPSIA
     Route: 048
     Dates: start: 200401, end: 201712
  36. PREVACID 24 HR [Suspect]
     Active Substance: LANSOPRAZOLE
     Route: 065
     Dates: start: 200401, end: 201712
  37. PRAVASTATIN. [Concomitant]
     Active Substance: PRAVASTATIN
     Indication: BLOOD CHOLESTEROL INCREASED
     Dates: start: 20110616
  38. CIMETIDINE [Concomitant]
     Active Substance: CIMETIDINE
  39. MUPIROCIN. [Concomitant]
     Active Substance: MUPIROCIN
  40. DOXAZOSIN [Concomitant]
     Active Substance: DOXAZOSIN MESYLATE
  41. NEXIUM 24HR [Suspect]
     Active Substance: ESOMEPRAZOLE MAGNESIUM
     Indication: GASTROOESOPHAGEAL REFLUX DISEASE
     Route: 048
     Dates: start: 200401, end: 201712
  42. NEXIUM [Suspect]
     Active Substance: ESOMEPRAZOLE MAGNESIUM
     Indication: GASTROOESOPHAGEAL REFLUX DISEASE
     Dosage: GENERIC
     Route: 065
     Dates: start: 20151123
  43. FUROSEMIDE. [Concomitant]
     Active Substance: FUROSEMIDE
     Indication: OEDEMA
     Dates: start: 20120111
  44. TOBRAMYCIN. [Concomitant]
     Active Substance: TOBRAMYCIN
     Indication: PNEUMONIA
     Dates: start: 20111130

REACTIONS (10)
  - Chronic kidney disease [Not Recovered/Not Resolved]
  - Hyperkalaemia [Unknown]
  - Anxiety [Unknown]
  - Renal failure [Unknown]
  - Nephrogenic anaemia [Unknown]
  - Depression [Unknown]
  - Chronic kidney disease-mineral and bone disorder [Unknown]
  - Acute kidney injury [Not Recovered/Not Resolved]
  - End stage renal disease [Not Recovered/Not Resolved]
  - Gun shot wound [Unknown]

NARRATIVE: CASE EVENT DATE: 20170403
